FAERS Safety Report 5596379-8 (Version None)
Quarter: 2008Q1

REPORT INFORMATION
  Report Type: 
  Country: None (occurrence: None)
  Receive Date: 20080118
  Receipt Date: 20080108
  Transmission Date: 20080703
  Serious: Yes (Hospitalization)
  Sender: FDA-Public Use
  Company Number: JP-PFIZER INC-2007105731

PATIENT
  Sex: Female

DRUGS (15)
  1. MIGLITOL TABLET [Suspect]
     Indication: DIABETES MELLITUS
     Route: 048
     Dates: start: 20071201, end: 20071206
  2. MIGLITOL TABLET [Suspect]
  3. PREDONINE [Concomitant]
     Route: 048
     Dates: start: 20061018
  4. NEORAL [Concomitant]
     Route: 048
     Dates: start: 20061107
  5. OMEPRAL [Concomitant]
     Route: 048
     Dates: start: 20070126
  6. STARSIS [Concomitant]
     Route: 048
     Dates: start: 20061228
  7. FOSAMAX [Concomitant]
     Route: 048
     Dates: start: 20061219
  8. BAKTAR [Concomitant]
     Route: 048
  9. FUNGIZONE [Concomitant]
     Route: 048
     Dates: start: 20061103
  10. MAGNESIUM OXIDE [Concomitant]
     Route: 048
     Dates: start: 20061018
  11. VANCOMIN [Concomitant]
     Route: 048
  12. FLUVOXAMINE MALEATE [Concomitant]
     Route: 048
  13. GASTROM [Concomitant]
     Route: 048
     Dates: start: 20061027
  14. RIZE [Concomitant]
     Route: 048
     Dates: start: 20061027
  15. RISPERDAL [Concomitant]
     Route: 048
     Dates: start: 20061219

REACTIONS (4)
  - ALANINE AMINOTRANSFERASE INCREASED [None]
  - ASPARTATE AMINOTRANSFERASE INCREASED [None]
  - BLOOD ALKALINE PHOSPHATASE INCREASED [None]
  - GAMMA-GLUTAMYLTRANSFERASE INCREASED [None]
